FAERS Safety Report 8489488-7 (Version None)
Quarter: 2012Q3

REPORT INFORMATION
  Report Type: 
  Country: None (occurrence: None)
  Receive Date: 20120705
  Receipt Date: 20120429
  Transmission Date: 20120928
  Serious: Yes (Hospitalization)
  Sender: FDA-Public Use
  Company Number: CH-ASTRAZENECA-2012SE16279

PATIENT
  Age: 29584 Day
  Sex: Female
  Weight: 73 kg

DRUGS (8)
  1. BRILINTA [Suspect]
     Route: 048
     Dates: start: 20120210, end: 20120306
  2. ATORVASTATIN CALCIUM [Concomitant]
     Indication: HYPERCHOLESTEROLAEMIA
     Route: 048
  3. PANTOPRAZOLE [Concomitant]
     Indication: HYPERCHLORHYDRIA
  4. HALCION [Concomitant]
     Indication: SLEEP DISORDER
  5. ASPIRIN [Suspect]
     Route: 065
  6. ATACAND [Concomitant]
     Indication: HYPERTENSION
     Route: 048
  7. HALCION [Concomitant]
  8. BUDENOFALK [Concomitant]
     Indication: COLITIS MICROSCOPIC

REACTIONS (2)
  - CEREBROVASCULAR ACCIDENT [None]
  - DRUG INEFFECTIVE [None]
